FAERS Safety Report 8556326-3 (Version None)
Quarter: 2012Q3

REPORT INFORMATION
  Report Type: 
  Country: None (occurrence: None)
  Receive Date: 20120801
  Receipt Date: 20120710
  Transmission Date: 20120928
  Serious: No
  Sender: FDA-Public Use
  Company Number: US-009507513-1207USA004016

PATIENT

DRUGS (1)
  1. IMPLANON [Suspect]
     Dosage: UNK MG, UNK
     Dates: start: 20100909, end: 20120710

REACTIONS (1)
  - MENSTRUATION IRREGULAR [None]
